FAERS Safety Report 10873544 (Version 2)
Quarter: 2015Q2

REPORT INFORMATION
  Report Type: Spontaneous
  Country: FR (occurrence: FR)
  Receive Date: 20150227
  Receipt Date: 20150426
  Transmission Date: 20150821
  Serious: Yes (Hospitalization)
  Sender: FDA-Public Use
  Company Number: FR-009507513-1502FRA011443

PATIENT
  Age: 66 Year
  Sex: Male

DRUGS (7)
  1. TEVAGRASTIM [Suspect]
     Active Substance: FILGRASTIM
     Dosage: 30 MG, QD(30MG X5 DAYS, 30 MG, 5 TIMES PER CYCLE)
     Route: 058
     Dates: start: 20150112, end: 20150116
  2. EMEND [Suspect]
     Active Substance: APREPITANT
     Indication: PROPHYLAXIS
     Dosage: UNK, CYCLE 1
     Route: 048
     Dates: start: 20141124, end: 20141124
  3. TEVAGRASTIM [Suspect]
     Active Substance: FILGRASTIM
     Dosage: 30 MG, QD(30MG X5 DAYS, 30 MG, 5 TIMES PER CYCLE)
     Route: 058
     Dates: start: 20141219, end: 20141223
  4. EMEND [Suspect]
     Active Substance: APREPITANT
     Dosage: UNK, CYCLE 2
     Route: 048
     Dates: start: 20141215, end: 20141215
  5. CISPLATIN. [Suspect]
     Active Substance: CISPLATIN
     Indication: LIP AND/OR ORAL CAVITY CANCER
     Dosage: 100 MG/M2 PER CYCLE, EVERY 3 WEEKS, TOTAL OF 3 CYCLES
     Route: 042
     Dates: start: 20141124, end: 20150108
  6. EMEND [Suspect]
     Active Substance: APREPITANT
     Dosage: UNK, CYCLE 3
     Route: 048
     Dates: start: 20150108, end: 20150108
  7. TEVAGRASTIM [Suspect]
     Active Substance: FILGRASTIM
     Indication: PROPHYLAXIS
     Dosage: 30 MG, QD(30MG X5 DAYS, 30 MG, 5 TIMES PER CYCLE)
     Route: 058
     Dates: start: 20141128, end: 20141202

REACTIONS (2)
  - Vasculitis [Recovered/Resolved]
  - Hypersensitivity vasculitis [Recovered/Resolved]

NARRATIVE: CASE EVENT DATE: 20150131
